FAERS Safety Report 5441765-X (Version None)
Quarter: 2007Q3

REPORT INFORMATION
  Report Type: 
  Country: None (occurrence: None)
  Receive Date: 20070904
  Receipt Date: 20070827
  Transmission Date: 20080115
  Serious: Yes (Death)
  Sender: FDA-Public Use
  Company Number: PHEH2007US11543

PATIENT

DRUGS (1)
  1. METOPIRONE [Suspect]

REACTIONS (1)
  - DEATH [None]
